FAERS Safety Report 23090827 (Version 2)
Quarter: 2023Q4

REPORT INFORMATION
  Report Type: Spontaneous
  Country: US (occurrence: US)
  Receive Date: 20231020
  Receipt Date: 20231024
  Transmission Date: 20240110
  Serious: No
  Sender: FDA-Public Use
  Company Number: US-PFIZER INC-PV202300170690

PATIENT
  Age: 69 Year
  Sex: Female
  Weight: 74.83 kg

DRUGS (16)
  1. SPIRONOLACTONE [Interacting]
     Active Substance: SPIRONOLACTONE
     Dosage: UNK
  2. PANTOPRAZOLE [Interacting]
     Active Substance: PANTOPRAZOLE
     Dosage: UNK
  3. ATORVASTATIN [Interacting]
     Active Substance: ATORVASTATIN
     Dosage: UNK
  4. SERTRALINE HYDROCHLORIDE [Interacting]
     Active Substance: SERTRALINE HYDROCHLORIDE
     Dosage: UNK
  5. ORENITRAM [Interacting]
     Active Substance: TREPROSTINIL
     Indication: Pulmonary arterial hypertension
     Dosage: UNK
     Route: 048
     Dates: start: 20230131, end: 2023
  6. ORENITRAM [Interacting]
     Active Substance: TREPROSTINIL
     Dosage: 2.5 MG
     Route: 048
     Dates: start: 2023, end: 2023
  7. ORENITRAM [Interacting]
     Active Substance: TREPROSTINIL
     Dosage: 0.25 MG
     Route: 048
     Dates: start: 2023, end: 2023
  8. ORENITRAM [Interacting]
     Active Substance: TREPROSTINIL
     Dosage: 3 MG Q8H
     Route: 048
     Dates: start: 2023
  9. BUSPIRONE HYDROCHLORIDE [Interacting]
     Active Substance: BUSPIRONE HYDROCHLORIDE
     Dosage: UNK
  10. TADALAFIL [Interacting]
     Active Substance: TADALAFIL
     Dosage: UNK
  11. OXYGEN [Interacting]
     Active Substance: OXYGEN
     Dosage: UNK
  12. NALTREXONE HYDROCHLORIDE [Interacting]
     Active Substance: NALTREXONE HYDROCHLORIDE
     Dosage: UNK
  13. ASPIRIN [Interacting]
     Active Substance: ASPIRIN
     Dosage: UNK
  14. OPSUMIT [Interacting]
     Active Substance: MACITENTAN
     Dosage: UNK
  15. TORSEMIDE [Interacting]
     Active Substance: TORSEMIDE
     Dosage: UNK
  16. VITAMINS [Interacting]
     Active Substance: VITAMINS
     Dosage: UNK

REACTIONS (3)
  - Nausea [Unknown]
  - Diarrhoea [Unknown]
  - Drug interaction [Unknown]

NARRATIVE: CASE EVENT DATE: 20230101
